FAERS Safety Report 6683920-7 (Version None)
Quarter: 2010Q2

REPORT INFORMATION
  Report Type: 
  Country: None (occurrence: None)
  Receive Date: 20100416
  Receipt Date: 20100407
  Transmission Date: 20101027
  Serious: Yes (Death, Other)
  Sender: FDA-Public Use
  Company Number: US-PFIZER INC-2008009573

PATIENT
  Sex: Male
  Weight: 80.909 kg

DRUGS (2)
  1. CHANTIX [Suspect]
     Indication: SMOKING CESSATION THERAPY
     Dosage: 0.5 MG, 1X/DAY
     Dates: start: 20070901, end: 20071030
  2. VITAMIN C [Concomitant]

REACTIONS (18)
  - ABDOMINAL DISTENSION [None]
  - ANXIETY [None]
  - DEATH [None]
  - DECREASED INTEREST [None]
  - DISTURBANCE IN ATTENTION [None]
  - DIZZINESS [None]
  - DRUG INEFFECTIVE [None]
  - DYSPNOEA [None]
  - FATIGUE [None]
  - FLUID RETENTION [None]
  - HEPATIC ENZYME INCREASED [None]
  - ILL-DEFINED DISORDER [None]
  - IRRITABILITY [None]
  - LIBIDO DECREASED [None]
  - OEDEMA PERIPHERAL [None]
  - PROSTATIC DISORDER [None]
  - PULMONARY HYPERTENSION [None]
  - WEIGHT INCREASED [None]
